FAERS Safety Report 11457628 (Version 1)
Quarter: 2015Q3

REPORT INFORMATION
  Report Type: Spontaneous
  Country: FR (occurrence: FR)
  Receive Date: 20150904
  Receipt Date: 20150904
  Transmission Date: 20151125
  Serious: Yes (Hospitalization)
  Sender: FDA-Public Use
  Company Number: FR-SA-2015SA130964

PATIENT
  Age: 76 Year
  Sex: Male

DRUGS (8)
  1. CIFLOX [Concomitant]
     Active Substance: CIPROFLOXACIN
     Indication: PYREXIA
     Route: 065
     Dates: start: 20150414
  2. KARDEGIC [Suspect]
     Active Substance: ASPIRIN LYSINE
     Route: 048
     Dates: start: 20150426, end: 20150615
  3. CORDARONE [Concomitant]
     Active Substance: AMIODARONE HYDROCHLORIDE
     Indication: ATRIAL FIBRILLATION
     Route: 065
     Dates: start: 20150426
  4. COUMADIN [Suspect]
     Active Substance: WARFARIN SODIUM
     Route: 048
     Dates: start: 20150426, end: 20150614
  5. RIFAMPICIN [Suspect]
     Active Substance: RIFAMPIN
     Route: 048
     Dates: start: 20150504, end: 20150605
  6. ORBENINE [Suspect]
     Active Substance: CLOXACILLIN SODIUM
     Indication: ANTIBIOTIC THERAPY
     Dosage: 6 IN ONE DAY
     Route: 042
     Dates: start: 20150416, end: 20150605
  7. HEPARIN [Concomitant]
     Active Substance: HEPARIN SODIUM
     Route: 065
     Dates: start: 20150426
  8. GENTAMICIN. [Concomitant]
     Active Substance: GENTAMICIN
     Indication: ANTIBIOTIC THERAPY
     Route: 065
     Dates: start: 20150416, end: 20150419

REACTIONS (1)
  - Nephritis allergic [Recovering/Resolving]

NARRATIVE: CASE EVENT DATE: 20150529
